FAERS Safety Report 15206529 (Version 3)
Quarter: 2018Q3

REPORT INFORMATION
  Report Type: Spontaneous
  Country: US (occurrence: US)
  Receive Date: 20180727
  Receipt Date: 20180913
  Transmission Date: 20181010
  Serious: No
  Sender: FDA-Public Use
  Company Number: US-PFIZER INC-2018297366

PATIENT
  Age: 73 Year
  Sex: Female
  Weight: 40.82 kg

DRUGS (1)
  1. XELJANZ XR [Suspect]
     Active Substance: TOFACITINIB CITRATE
     Indication: RHEUMATOID ARTHRITIS
     Dosage: 11 MG, 1X/DAY [AT NIGHT]
     Route: 048
     Dates: start: 201806

REACTIONS (4)
  - Weight decreased [Unknown]
  - Drug ineffective [Unknown]
  - C-reactive protein increased [Unknown]
  - Red blood cell sedimentation rate decreased [Unknown]

NARRATIVE: CASE EVENT DATE: 2018
